FAERS Safety Report 11487557 (Version 1)
Quarter: 2015Q3

REPORT INFORMATION
  Report Type: Spontaneous
  Country: US (occurrence: US)
  Receive Date: 20150910
  Receipt Date: 20150910
  Transmission Date: 20151125
  Serious: No
  Sender: FDA-Public Use
  Company Number: US-ROCHE-1445128

PATIENT
  Sex: Male

DRUGS (3)
  1. SOVALDI [Suspect]
     Active Substance: SOFOSBUVIR
     Indication: CHRONIC HEPATITIS C
     Route: 048
     Dates: start: 20140729
  2. PEGASYS [Suspect]
     Active Substance: PEGINTERFERON ALFA-2A
     Indication: CHRONIC HEPATITIS C
     Route: 058
     Dates: start: 20140729
  3. COPEGUS [Suspect]
     Active Substance: RIBAVIRIN
     Indication: CHRONIC HEPATITIS C
     Dosage: 3 DF IN THE AM, 3 IN THE PM; TOTAL DOSE RECEIVED: 1200 MG; DIVIDED DOSES (600/600)
     Route: 048
     Dates: start: 20140729

REACTIONS (9)
  - Fatigue [Unknown]
  - Tremor [Unknown]
  - Influenza [Unknown]
  - Drug dose omission [Unknown]
  - Rash macular [Unknown]
  - Rash [Recovered/Resolved]
  - Injection site haemorrhage [Unknown]
  - Headache [Unknown]
  - Anaemia [Unknown]
